FAERS Safety Report 10615089 (Version 1)
Quarter: 2014Q4

REPORT INFORMATION
  Report Type: Spontaneous
  Country: FR (occurrence: FR)
  Receive Date: 20141201
  Receipt Date: 20141201
  Transmission Date: 20150529
  Serious: Yes (Hospitalization, Other)
  Sender: FDA-Public Use
  Company Number: FR-AUROBINDO-AUR-APL-2014-12599

PATIENT
  Age: 68 Year
  Sex: Female

DRUGS (6)
  1. BEVITINE [Concomitant]
     Active Substance: THIAMINE
     Indication: PRODUCT USED FOR UNKNOWN INDICATION
     Dosage: UNK
     Route: 065
     Dates: start: 201312
  2. AMLODIPINE [Suspect]
     Active Substance: AMLODIPINE BESYLATE
     Indication: PRODUCT USED FOR UNKNOWN INDICATION
     Route: 065
  3. ALPRAZOLAM. [Suspect]
     Active Substance: ALPRAZOLAM
     Indication: PRODUCT USED FOR UNKNOWN INDICATION
     Route: 065
  4. STILNOX [Concomitant]
     Active Substance: ZOLPIDEM TARTRATE
     Indication: PRODUCT USED FOR UNKNOWN INDICATION
     Dosage: UNK
     Route: 065
     Dates: start: 201312
  5. SPECIAFOLDINE [Concomitant]
     Active Substance: FOLIC ACID
     Indication: PRODUCT USED FOR UNKNOWN INDICATION
     Dosage: UNK
     Route: 065
     Dates: start: 201312
  6. BECILAN [Concomitant]
     Active Substance: PYRIDOXINE
     Indication: PRODUCT USED FOR UNKNOWN INDICATION
     Dosage: UNK
     Route: 065
     Dates: start: 201312

REACTIONS (21)
  - Decreased appetite [Unknown]
  - Hypoalbuminaemia [Unknown]
  - Vomiting [Unknown]
  - Vitamin B6 deficiency [Unknown]
  - Vitamin B1 deficiency [Unknown]
  - Gamma-glutamyltransferase increased [Not Recovered/Not Resolved]
  - Weight decreased [Unknown]
  - Hyponatraemia [Unknown]
  - Renal failure [Unknown]
  - Blood albumin decreased [Not Recovered/Not Resolved]
  - Hepatocellular injury [Unknown]
  - Hyperkaliuria [Unknown]
  - Vitamin B12 deficiency [Unknown]
  - Diarrhoea [Unknown]
  - Fall [Unknown]
  - Treatment noncompliance [Unknown]
  - Aspartate aminotransferase increased [Not Recovered/Not Resolved]
  - General physical health deterioration [Unknown]
  - Urine sodium increased [Unknown]
  - Hypokalaemia [Unknown]
  - Protein total abnormal [Not Recovered/Not Resolved]

NARRATIVE: CASE EVENT DATE: 201312
